FAERS Safety Report 15575617 (Version 3)
Quarter: 2019Q2

REPORT INFORMATION
  Report Type: Report from Study
  Country: US (occurrence: US)
  Receive Date: 20181101
  Receipt Date: 20190422
  Transmission Date: 20190711
  Serious: Yes (Other)
  Sender: FDA-Public Use
  Company Number: PHEH2018US045744

PATIENT
  Age: 40 Year
  Sex: Female

DRUGS (4)
  1. COSENTYX [Suspect]
     Active Substance: SECUKINUMAB
     Indication: PSORIASIS
     Dosage: 300 MG, QMO
     Route: 058
     Dates: start: 20180624
  2. COSENTYX [Suspect]
     Active Substance: SECUKINUMAB
     Dosage: 300 MG, QMO
     Route: 058
  3. COSENTYX [Suspect]
     Active Substance: SECUKINUMAB
     Dosage: 300 MG, QMO
     Route: 058
  4. COSENTYX [Suspect]
     Active Substance: SECUKINUMAB
     Dosage: 300 MG, QMO
     Route: 058

REACTIONS (8)
  - Malaise [Not Recovered/Not Resolved]
  - Arthralgia [Unknown]
  - Muscle rupture [Unknown]
  - Pain in extremity [Unknown]
  - Infectious mononucleosis [Unknown]
  - Onychalgia [Unknown]
  - Pharyngitis streptococcal [Unknown]
  - Tonsillitis [Unknown]

NARRATIVE: CASE EVENT DATE: 201809
